FAERS Safety Report 20961583 (Version 2)
Quarter: 2022Q3

REPORT INFORMATION
  Report Type: Spontaneous
  Country: US (occurrence: US)
  Receive Date: 20220615
  Receipt Date: 20220823
  Transmission Date: 20221027
  Serious: Yes (Other)
  Sender: FDA-Public Use
  Company Number: US-BAYER-2022A080414

PATIENT
  Age: 46 Year
  Sex: Female

DRUGS (1)
  1. ACETAMINOPHEN\CHLORPHENIRAMINE\DEXTROMETHORPHAN\PHENYLEPHRINE [Suspect]
     Active Substance: ACETAMINOPHEN\CHLORPHENIRAMINE\DEXTROMETHORPHAN\PHENYLEPHRINE
     Indication: Sinusitis
     Dosage: 2 DF
     Route: 048
     Dates: start: 202206

REACTIONS (13)
  - Foreign body in throat [Recovered/Resolved]
  - Choking [None]
  - Oropharyngeal pain [Recovered/Resolved]
  - Dry throat [Recovered/Resolved]
  - Product use complaint [None]
  - Throat irritation [None]
  - Adverse event [None]
  - Insomnia [None]
  - Pharyngeal swelling [None]
  - Product coating issue [None]
  - Illness [Recovering/Resolving]
  - Feeling abnormal [None]
  - Product solubility abnormal [None]

NARRATIVE: CASE EVENT DATE: 20220601
